FAERS Safety Report 11761462 (Version 3)
Quarter: 2015Q4

REPORT INFORMATION
  Report Type: Spontaneous
  Country: JP (occurrence: JP)
  Receive Date: 20151120
  Receipt Date: 20151229
  Transmission Date: 20160304
  Serious: Yes (Hospitalization, Other)
  Sender: FDA-Public Use
  Company Number: JP-GLAXOSMITHKLINE-JP2015JPN138249

PATIENT
  Age: 6 Year
  Sex: Female

DRUGS (18)
  1. LAMICTAL [Suspect]
     Active Substance: LAMOTRIGINE
     Dosage: 19 MG, BID
     Route: 048
     Dates: start: 20140527, end: 20140610
  2. ONON DRYSYRUP [Concomitant]
     Dosage: 32.5 MG, BID
  3. LAMICTAL [Suspect]
     Active Substance: LAMOTRIGINE
     Indication: LENNOX-GASTAUT SYNDROME
     Dosage: UNK UNK, 1D
     Route: 048
     Dates: start: 20100714
  4. LAMICTAL [Suspect]
     Active Substance: LAMOTRIGINE
     Dosage: 20 MG, BID
     Route: 048
     Dates: start: 20140611, end: 20140708
  5. LAMICTAL [Suspect]
     Active Substance: LAMOTRIGINE
     Dosage: 26 MG, BID
     Route: 048
     Dates: start: 20150909, end: 20150917
  6. EXCEGRAN [Suspect]
     Active Substance: ZONISAMIDE
     Dosage: 100 MG, 1D
     Route: 048
     Dates: start: 20151030, end: 20151110
  7. LAMICTAL [Suspect]
     Active Substance: LAMOTRIGINE
     Dosage: 25 MG, BID
     Route: 048
     Dates: start: 20150918
  8. LAMICTAL [Suspect]
     Active Substance: LAMOTRIGINE
     Dosage: 18 MG, BID
     Route: 048
     Dates: start: 20140409, end: 20140526
  9. LAMICTAL [Suspect]
     Active Substance: LAMOTRIGINE
     Dosage: 22 MG, BID
     Route: 048
     Dates: start: 20140813, end: 20140909
  10. EXCEGRAN [Suspect]
     Active Substance: ZONISAMIDE
     Dosage: 95 MG, 1D
     Route: 048
     Dates: start: 20150918, end: 20151013
  11. RUFINAMIDE [Concomitant]
     Active Substance: RUFINAMIDE
     Dosage: 212.50 MG, BID
  12. LAMICTAL [Suspect]
     Active Substance: LAMOTRIGINE
     Dosage: 21 MG, BID
     Route: 048
     Dates: start: 20140709, end: 20140812
  13. LAMICTAL [Suspect]
     Active Substance: LAMOTRIGINE
     Dosage: 24 MG, BID
     Route: 048
     Dates: start: 20141008, end: 20141209
  14. LAMICTAL [Suspect]
     Active Substance: LAMOTRIGINE
     Dosage: 25 MG, BID
     Route: 048
     Dates: start: 20141210, end: 20150908
  15. EXCEGRAN [Suspect]
     Active Substance: ZONISAMIDE
     Dosage: 35 MG, BID
     Route: 048
     Dates: end: 20150917
  16. EXCEGRAN [Suspect]
     Active Substance: ZONISAMIDE
     Dosage: 120 MG, 1D
     Route: 048
     Dates: start: 20151014, end: 20151029
  17. LAMICTAL [Suspect]
     Active Substance: LAMOTRIGINE
     Dosage: 23 MG, BID
     Route: 048
     Dates: start: 20140910, end: 20141007
  18. EXCEGRAN [Suspect]
     Active Substance: ZONISAMIDE
     Dosage: 105 MG, 1D
     Route: 048
     Dates: start: 20151111

REACTIONS (10)
  - Hypophagia [Recovering/Resolving]
  - Weight decreased [Unknown]
  - Listless [Recovering/Resolving]
  - Hypophagia [Recovering/Resolving]
  - Pyrexia [Unknown]
  - Decreased appetite [Recovered/Resolved]
  - Streptococcal infection [Unknown]
  - Seizure [Recovered/Resolved]
  - Drug level decreased [Unknown]
  - Somnolence [Recovering/Resolving]

NARRATIVE: CASE EVENT DATE: 201509
